FAERS Safety Report 4803674-6 (Version None)
Quarter: 2005Q4

REPORT INFORMATION
  Report Type: 
  Country: None (occurrence: None)
  Receive Date: 20051014
  Receipt Date: 20051007
  Transmission Date: 20060501
  Serious: Yes (Other)
  Sender: FDA-Public Use
  Company Number: 2005-03827

PATIENT
  Age: 13 Year
  Sex: Male

DRUGS (1)
  1. ANDRODERM [Suspect]
     Indication: HYPOGONADISM MALE

REACTIONS (4)
  - ACNE [None]
  - ARTERIOSCLEROSIS [None]
  - HAEMANGIOMA [None]
  - MUSCLE MASS [None]
